FAERS Safety Report 6645462-4 (Version None)
Quarter: 2010Q1

REPORT INFORMATION
  Report Type: 
  Country: None (occurrence: None)
  Receive Date: 20100322
  Receipt Date: 20100311
  Transmission Date: 20100710
  Serious: Yes (Hospitalization)
  Sender: FDA-Public Use
  Company Number: US-ASTRAZENECA-2010SE10618

PATIENT
  Age: 17248 Day
  Sex: Male
  Weight: 83.5 kg

DRUGS (9)
  1. SEROQUEL [Suspect]
     Indication: BIPOLAR DISORDER
     Route: 048
     Dates: start: 20081001
  2. SEROQUEL [Suspect]
     Route: 048
     Dates: end: 20100101
  3. SEROQUEL [Suspect]
     Route: 048
     Dates: start: 20100101
  4. BISTOLIC [Concomitant]
     Indication: CARDIOVASCULAR EVENT PROPHYLAXIS
  5. ASPIRIN [Concomitant]
     Indication: CARDIOVASCULAR EVENT PROPHYLAXIS
  6. SYMVASTATIN [Concomitant]
     Indication: BLOOD CHOLESTEROL
  7. CLONOPIN [Concomitant]
     Indication: BIPOLAR DISORDER
     Dosage: 0.5 MG DAILY PRN
  8. TIDANIDINE [Concomitant]
     Indication: MUSCLE RELAXANT THERAPY
  9. VICODIN [Concomitant]
     Indication: NECK PAIN

REACTIONS (3)
  - DRUG INEFFECTIVE [None]
  - INTENTIONAL DRUG MISUSE [None]
  - MYOCARDIAL INFARCTION [None]
